FAERS Safety Report 7014574-8 (Version None)
Quarter: 2010Q3

REPORT INFORMATION
  Report Type: 
  Country: None (occurrence: None)
  Receive Date: 20100924
  Receipt Date: 20100924
  Transmission Date: 20110219
  Serious: Yes (Other)
  Sender: FDA-Public Use
  Company Number: None

PATIENT
  Sex: Female
  Weight: 83.6 kg

DRUGS (2)
  1. FENTANYL [Suspect]
     Indication: TRIGEMINAL NEURALGIA
     Dosage: 50 MCG/HR Q 3 DAYS TRANSDERMAL
     Route: 062
  2. FENTANYL [Suspect]

REACTIONS (4)
  - APPLICATION SITE DISCOLOURATION [None]
  - APPLICATION SITE PRURITUS [None]
  - APPLICATION SITE RASH [None]
  - BLISTER [None]
